FAERS Safety Report 4328191-1 (Version None)
Quarter: 2004Q1

REPORT INFORMATION
  Report Type: 
  Country: None (occurrence: None)
  Receive Date: 20040331
  Receipt Date: 20040225
  Transmission Date: 20041129
  Serious: Yes (Hospitalization, Congenital Anomaly)
  Sender: FDA-Public Use
  Company Number: JP-GLAXOSMITHKLINE-B0324678A

PATIENT
  Sex: Male
  Weight: 3.1 kg

DRUGS (3)
  1. PAXIL [Suspect]
     Dosage: 10MG TWICE PER DAY
     Dates: end: 20040128
  2. DEPAKENE [Suspect]
     Dosage: 200MG TWICE PER DAY
     Dates: end: 20040128
  3. ANAFRANIL [Suspect]
     Dosage: 10MG TWICE PER DAY
     Dates: end: 20040128

REACTIONS (16)
  - APGAR SCORE LOW [None]
  - ASPHYXIA [None]
  - CONGENITAL ATRIAL SEPTAL DEFECT [None]
  - CYANOSIS [None]
  - DRUG WITHDRAWAL SYNDROME [None]
  - HYPERTONIA [None]
  - INTERCOSTAL RETRACTION [None]
  - IRRITABILITY [None]
  - MATERNAL DRUGS AFFECTING FOETUS [None]
  - MICROGNATHIA [None]
  - NEONATAL ASPHYXIA [None]
  - NEONATAL TACHYPNOEA [None]
  - NERVOUS SYSTEM DISORDER [None]
  - RESPIRATORY ACIDOSIS [None]
  - TREMOR [None]
  - TRICUSPID VALVE INCOMPETENCE [None]
